FAERS Safety Report 16055912 (Version 2)
Quarter: 2019Q2

REPORT INFORMATION
  Report Type: Spontaneous
  Country: IT (occurrence: IT)
  Receive Date: 20190311
  Receipt Date: 20190617
  Transmission Date: 20190711
  Serious: Yes (Death, Other)
  Sender: FDA-Public Use
  Company Number: IT-SUN PHARMACEUTICAL INDUSTRIES LTD-2019R1-201187

PATIENT
  Age: 52 Year
  Sex: Female

DRUGS (1)
  1. DECITABINE. [Suspect]
     Active Substance: DECITABINE
     Indication: ACUTE MYELOID LEUKAEMIA
     Dosage: I.V. DOSE OF DECITABINE DAILY EVERY 28DAYS FOR AN OVERALL 35DOSES
     Route: 042
     Dates: start: 201706, end: 201709

REACTIONS (2)
  - Off label use [Unknown]
  - Disease progression [Recovered/Resolved]
